FAERS Safety Report 8825920 (Version 1)
Quarter: 2012Q4

REPORT INFORMATION
  Report Type: 
  Country: US (occurrence: US)
  Receive Date: 20121005
  Receipt Date: 20121005
  Transmission Date: 20130627
  Serious: No
  Sender: FDA-Public Use
  Company Number: US-BAYER-2012-104296

PATIENT
  Age: 22 Year
  Sex: Male

DRUGS (1)
  1. GADAVIST [Suspect]
     Dosage: 7.5 ml, UNK
     Dates: start: 20121004

REACTIONS (1)
  - Vomiting [None]
